FAERS Safety Report 11014023 (Version 2)
Quarter: 2015Q2

REPORT INFORMATION
  Report Type: Spontaneous
  Country: US (occurrence: US)
  Receive Date: 20150412
  Receipt Date: 20150525
  Transmission Date: 20150821
  Serious: No
  Sender: FDA-Public Use
  Company Number: US-JNJFOC-20140201012

PATIENT
  Age: 61 Year
  Sex: Female
  Weight: 60.33 kg

DRUGS (4)
  1. ELMIRON [Suspect]
     Active Substance: PENTOSAN POLYSULFATE SODIUM
     Indication: CYSTITIS INTERSTITIAL
     Route: 048
     Dates: start: 201310, end: 20140125
  2. TUMS [Suspect]
     Active Substance: CALCIUM CARBONATE
     Indication: GASTRIC DISORDER
     Route: 065
  3. PRILOSEC [Suspect]
     Active Substance: OMEPRAZOLE MAGNESIUM
     Indication: GASTRIC DISORDER
     Route: 065
  4. TAGAMET [Suspect]
     Active Substance: CIMETIDINE
     Indication: GASTRIC DISORDER
     Route: 065

REACTIONS (1)
  - Gastric disorder [Not Recovered/Not Resolved]

NARRATIVE: CASE EVENT DATE: 201310
